FAERS Safety Report 12142542 (Version 1)
Quarter: 2016Q1

REPORT INFORMATION
  Report Type: Spontaneous
  Country: US (occurrence: US)
  Receive Date: 20160303
  Receipt Date: 20160303
  Transmission Date: 20160526
  Serious: Yes (Hospitalization)
  Sender: FDA-Public Use
  Company Number: US-UNITED THERAPEUTICS-UNT-2016-002820

PATIENT
  Sex: Female
  Weight: 68.27 kg

DRUGS (1)
  1. TYVASO [Suspect]
     Active Substance: TREPROSTINIL
     Indication: PULMONARY ARTERIAL HYPERTENSION
     Dosage: 126 MICROGRAMS,BID
     Dates: start: 20150218

REACTIONS (4)
  - Product use issue [Unknown]
  - Decreased appetite [Unknown]
  - Blood sodium decreased [Unknown]
  - Oedema [Unknown]

NARRATIVE: CASE EVENT DATE: 20160126
